FAERS Safety Report 5213199-4 (Version None)
Quarter: 2007Q1

REPORT INFORMATION
  Report Type: 
  Country: None (occurrence: None)
  Receive Date: 20070119
  Receipt Date: 20070112
  Transmission Date: 20070707
  Serious: Yes (Other)
  Sender: FDA-Public Use
  Company Number: GB-GLAXOSMITHKLINE-B0454048A

PATIENT
  Sex: Female

DRUGS (4)
  1. TRIZIVIR [Suspect]
     Indication: HIV INFECTION
     Route: 048
  2. COMBIVIR [Suspect]
  3. UNKNOWN ANTIRETROVIRAL TREATMENT [Suspect]
  4. ZIDOVUDINE [Concomitant]

REACTIONS (3)
  - MALAISE [None]
  - NEPHROLITHIASIS [None]
  - RASH [None]
